FAERS Safety Report 7356595-1 (Version None)
Quarter: 2011Q1

REPORT INFORMATION
  Report Type: 
  Country: None (occurrence: None)
  Receive Date: 20110316
  Receipt Date: 20110303
  Transmission Date: 20110831
  Serious: Yes (Other)
  Sender: FDA-Public Use
  Company Number: PHHY2010CA52782

PATIENT
  Sex: Male

DRUGS (6)
  1. FOLIC ACID [Concomitant]
  2. DEXAMETHASONE [Concomitant]
  3. EXJADE [Suspect]
     Indication: ANAEMIA HAEMOLYTIC AUTOIMMUNE
     Dosage: 1000 MG, QD
     Route: 048
     Dates: start: 20100713, end: 20101201
  4. ACYCLOVIR [Concomitant]
  5. EXJADE [Suspect]
     Indication: CHRONIC LYMPHOCYTIC LEUKAEMIA
  6. GABAPENTIN [Concomitant]

REACTIONS (9)
  - INFECTION [None]
  - ASTHENIA [None]
  - HERPES ZOSTER [None]
  - LIVER DISORDER [None]
  - RASH [None]
  - FEBRILE NEUTROPENIA [None]
  - SWELLING [None]
  - LUNG INFECTION [None]
  - DRUG INEFFECTIVE [None]
